FAERS Safety Report 5852216-5 (Version None)
Quarter: 2008Q3

REPORT INFORMATION
  Report Type: 
  Country: None (occurrence: None)
  Receive Date: 20080821
  Receipt Date: 20080813
  Transmission Date: 20090109
  Serious: Yes (Other)
  Sender: FDA-Public Use
  Company Number: JP-BRISTOL-MYERS SQUIBB COMPANY-14305593

PATIENT

DRUGS (4)
  1. SINEMET [Suspect]
     Route: 048
  2. DROXIDOPA [Concomitant]
  3. PRAMIPEXOLE HCL [Concomitant]
  4. SELEGILINE HCL [Concomitant]

REACTIONS (1)
  - CEREBRAL HAEMORRHAGE [None]
